FAERS Safety Report 4387810-4 (Version None)
Quarter: 2004Q2

REPORT INFORMATION
  Report Type: 
  Country: None (occurrence: None)
  Receive Date: 20040623
  Receipt Date: 20040609
  Transmission Date: 20050107
  Serious: Yes (Other)
  Sender: FDA-Public Use
  Company Number: US_0403101246

PATIENT
  Age: 64 Year
  Sex: Female
  Weight: 59 kg

DRUGS (8)
  1. FORTEO [Suspect]
     Indication: OSTEOPOROSIS
     Dosage: 20 UG DAY
     Dates: start: 20040217
  2. EVISTA [Suspect]
     Indication: OSTEOPOROSIS
     Dates: start: 20020701, end: 20040201
  3. NEXIUM [Concomitant]
  4. PRILOSEC [Concomitant]
  5. FOSAMAX [Concomitant]
  6. HERBAL VITAMINS [Concomitant]
  7. CALTRATE (CALCIUIM CARBONATE) [Concomitant]
  8. CALTRATE (CALCIUM [Concomitant]

REACTIONS (12)
  - BLOOD CALCIUM INCREASED [None]
  - BONE DENSITY DECREASED [None]
  - CHEST INJURY [None]
  - DIZZINESS [None]
  - INJECTION SITE BURNING [None]
  - INJECTION SITE DISCOLOURATION [None]
  - INJECTION SITE ERYTHEMA [None]
  - INJECTION SITE HAEMORRHAGE [None]
  - INJECTION SITE PAIN [None]
  - NERVOUSNESS [None]
  - PHARMACEUTICAL PRODUCT COMPLAINT [None]
  - ROAD TRAFFIC ACCIDENT [None]
